FAERS Safety Report 5086850-X (Version None)
Quarter: 2006Q3

REPORT INFORMATION
  Report Type: 
  Country: None (occurrence: None)
  Receive Date: 20060817
  Receipt Date: 20060810
  Transmission Date: 20061208
  Serious: Yes (Other)
  Sender: FDA-Public Use
  Company Number: HQWYE338110AUG06

PATIENT
  Age: 53 Year
  Sex: Female
  Weight: 56.75 kg

DRUGS (1)
  1. PREMARIN [Suspect]
     Dosage: 1 TABLET 1X PER 1 DAY, ORAL
     Route: 048

REACTIONS (1)
  - MENINGIOMA [None]
